FAERS Safety Report 17544936 (Version 1)
Quarter: 2020Q1

REPORT INFORMATION
  Report Type: Spontaneous
  Country: US (occurrence: US)
  Receive Date: 20200306
  Receipt Date: 20200306
  Transmission Date: 20200409
  Serious: Yes (Other)
  Sender: FDA-Public Use
  Company Number: None

PATIENT
  Sex: Male

DRUGS (4)
  1. ERBITUX [Suspect]
     Active Substance: CETUXIMAB
     Indication: MYELOPROLIFERATIVE NEOPLASM
     Route: 042
     Dates: start: 20190726
  2. ERBITUX [Suspect]
     Active Substance: CETUXIMAB
     Indication: SKIN CANCER
     Route: 042
     Dates: start: 20190726
  3. ERBITUX [Suspect]
     Active Substance: CETUXIMAB
     Indication: SKIN CANCER
     Route: 042
     Dates: start: 20190726
  4. ERBITUX [Suspect]
     Active Substance: CETUXIMAB
     Indication: MYELOPROLIFERATIVE NEOPLASM
     Route: 042
     Dates: start: 20190726

REACTIONS (1)
  - Emergency care [None]
